FAERS Safety Report 17543458 (Version 1)
Quarter: 2020Q1

REPORT INFORMATION
  Report Type: Spontaneous
  Country: US (occurrence: US)
  Receive Date: 20200316
  Receipt Date: 20200316
  Transmission Date: 20200409
  Serious: Yes (Other)
  Sender: FDA-Public Use
  Company Number: US-AUROBINDO-AUR-APL-2020-012248

PATIENT
  Age: 44 Year
  Sex: Female

DRUGS (1)
  1. NORGESTIMATE+ETHINYL ESTRADIOL [Suspect]
     Active Substance: ETHINYL ESTRADIOL\NORGESTIMATE
     Indication: CONTRACEPTION
     Dosage: UNK
     Route: 065

REACTIONS (3)
  - Epiploic appendagitis [Recovered/Resolved]
  - Abdominal pain lower [Recovered/Resolved]
  - Pain [Recovered/Resolved]
